FAERS Safety Report 7678171-3 (Version None)
Quarter: 2011Q3

REPORT INFORMATION
  Report Type: 
  Country: None (occurrence: None)
  Receive Date: 20110811
  Receipt Date: 20110801
  Transmission Date: 20111222
  Serious: Yes (Other)
  Sender: FDA-Public Use
  Company Number: FR-TEVA-295830ISR

PATIENT
  Age: 70 Year
  Sex: Female

DRUGS (1)
  1. CEFUROXIME [Suspect]
     Indication: CATARACT OPERATION
     Dosage: 40-50 MG
     Route: 031

REACTIONS (3)
  - RETINAL DETACHMENT [None]
  - ACCIDENTAL OVERDOSE [None]
  - RETINAL OEDEMA [None]
